FAERS Safety Report 7434727-4 (Version None)
Quarter: 2011Q2

REPORT INFORMATION
  Report Type: 
  Country: None (occurrence: None)
  Receive Date: 20110425
  Receipt Date: 20110420
  Transmission Date: 20111010
  Serious: Yes (Death)
  Sender: FDA-Public Use
  Company Number: US-PFIZER INC-2006013612

PATIENT
  Age: 50 Year
  Sex: Male

DRUGS (1)
  1. NEURONTIN [Suspect]
     Indication: ANXIETY
     Dosage: 300 MG, UNK
     Dates: start: 20040707

REACTIONS (2)
  - DRUG INEFFECTIVE [None]
  - COMPLETED SUICIDE [None]
